FAERS Safety Report 23249180 (Version 1)
Quarter: 2023Q4

REPORT INFORMATION
  Report Type: Spontaneous
  Country: CA (occurrence: CA)
  Receive Date: 20231201
  Receipt Date: 20231201
  Transmission Date: 20240109
  Serious: Yes (Hospitalization)
  Sender: FDA-Public Use
  Company Number: CA-CELLTRION INC.-2023CA011628

PATIENT

DRUGS (5)
  1. INFLECTRA [Suspect]
     Active Substance: INFLIXIMAB-DYYB
     Indication: Ankylosing spondylitis
     Dosage: 430 MG, RE-INDUCTION: WEEKS 0,2,6, MAINTENANCE: EVERY 8 WEEKS FOR 12 MONTHS
     Route: 042
  2. INFLECTRA [Suspect]
     Active Substance: INFLIXIMAB-DYYB
     Dosage: 430 MG, EVERY 8 WEEKS,W0, 2, 6 AND Q8 WEEKS
     Route: 042
     Dates: start: 20230619
  3. INFLECTRA [Suspect]
     Active Substance: INFLIXIMAB-DYYB
     Dosage: 430 MG, EVERY 8 WEEKS,W0, 2, 6 AND Q8 WEEKS
     Route: 042
     Dates: start: 20230926
  4. INFLECTRA [Suspect]
     Active Substance: INFLIXIMAB-DYYB
     Dosage: 430 MG, EVERY 8 WEEKS,W0, 2, 6 AND Q8 WEEKS
     Route: 042
     Dates: start: 20231121
  5. IDACIO [Concomitant]
     Active Substance: ADALIMUMAB-AACF
     Dosage: UNK

REACTIONS (3)
  - Calculus bladder [Recovered/Resolved]
  - Off label use [Unknown]
  - Off label use [Unknown]

NARRATIVE: CASE EVENT DATE: 20230101
